FAERS Safety Report 10735268 (Version 3)
Quarter: 2015Q2

REPORT INFORMATION
  Report Type: Spontaneous
  Country: US (occurrence: US)
  Receive Date: 20150125
  Receipt Date: 20150409
  Transmission Date: 20150821
  Serious: No
  Sender: FDA-Public Use
  Company Number: US-009507513-1501USA008170

PATIENT
  Sex: Female

DRUGS (2)
  1. PROVENTIL [Suspect]
     Active Substance: ALBUTEROL
     Dosage: ^4-6 TIMES DAILY AS NEEDED^
     Route: 055
     Dates: end: 2015
  2. PROVENTIL [Suspect]
     Active Substance: ALBUTEROL
     Dosage: ^4-6 TIMES DAILY AS NEEDED^
     Route: 055
     Dates: start: 2015

REACTIONS (4)
  - Product quality issue [Unknown]
  - Underdose [Unknown]
  - Wrong technique in drug usage process [Unknown]
  - Dyspnoea [Not Recovered/Not Resolved]
